FAERS Safety Report 8596713-0 (Version None)
Quarter: 2012Q3

REPORT INFORMATION
  Report Type: 
  Country: None (occurrence: None)
  Receive Date: 20120815
  Receipt Date: 20120813
  Transmission Date: 20120928
  Serious: No
  Sender: FDA-Public Use
  Company Number: US-TEVA-353519USA

PATIENT
  Sex: Female
  Weight: 90.8 kg

DRUGS (7)
  1. NUVIGIL [Suspect]
     Dosage: IN AM AND NOON
     Route: 048
     Dates: start: 20120810
  2. BUSPAR [Concomitant]
  3. MIRAPEX [Concomitant]
  4. ALLEGRA [Concomitant]
  5. VENTOLIN [Concomitant]
  6. LEXAPRO [Concomitant]
  7. FLUTICASONE PROPIONATE [Concomitant]

REACTIONS (1)
  - ANXIETY [None]
